FAERS Safety Report 5475356-1 (Version None)
Quarter: 2007Q4

REPORT INFORMATION
  Report Type: 
  Country: None (occurrence: None)
  Receive Date: 20071001
  Receipt Date: 20070913
  Transmission Date: 20080405
  Serious: Yes (Hospitalization)
  Sender: FDA-Public Use
  Company Number: 07H-163-0313243-01

PATIENT
  Age: 51 Year
  Sex: Male

DRUGS (4)
  1. DOBUTAMINE AND DEXTROSE SOLUTION (DOBUTAMINE/DEXTROSE SOLUTION) (DOBUT [Suspect]
  2. MYCOPHENOLATE MOFETIL [Suspect]
     Dosage: 1500 MG, DAILY, ORAL
     Route: 048
     Dates: start: 20060914, end: 20060914
  3. CICLOSPORIN [Concomitant]
  4. PREDNISONE [Concomitant]

REACTIONS (3)
  - ATRIAL FIBRILLATION [None]
  - HEART TRANSPLANT REJECTION [None]
  - TACHYCARDIA [None]
